FAERS Safety Report 7858703-2 (Version None)
Quarter: 2011Q4

REPORT INFORMATION
  Report Type: 
  Country: None (occurrence: None)
  Receive Date: 20111027
  Receipt Date: 20111018
  Transmission Date: 20120403
  Serious: Yes (Hospitalization)
  Sender: FDA-Public Use
  Company Number: BR-US-EMD SERONO, INC.-7085769

PATIENT
  Sex: Male

DRUGS (5)
  1. REBIF [Suspect]
     Indication: PRODUCT USED FOR UNKNOWN INDICATION
     Dates: start: 20040201
  2. ACETAMINOPHEN [Concomitant]
  3. MUVILAX [Concomitant]
  4. UNSPECIFIED F MANIPULATED FORMULA [Concomitant]
  5. MANTIDAN [Concomitant]

REACTIONS (2)
  - INJECTION SITE NODULE [None]
  - URINARY TRACT INFECTION [None]
